FAERS Safety Report 25203213 (Version 2)
Quarter: 2025Q3

REPORT INFORMATION
  Report Type: Spontaneous
  Country: US (occurrence: US)
  Receive Date: 20250416
  Receipt Date: 20250728
  Transmission Date: 20251020
  Serious: Yes (Other)
  Sender: AMGEN
  Company Number: US-AMGEN-USASP2025071188

PATIENT
  Age: 76 Year
  Sex: Female

DRUGS (6)
  1. PROLIA [Suspect]
     Active Substance: DENOSUMAB
     Indication: Osteoporosis
     Route: 058
     Dates: start: 20210707, end: 20210707
  2. PREDNISONE [Concomitant]
     Active Substance: PREDNISONE
  3. OXYCODONE [Concomitant]
     Active Substance: OXYCODONE
     Indication: Product used for unknown indication
  4. ZYRTEC [Concomitant]
     Active Substance: CETIRIZINE HYDROCHLORIDE
  5. TYLENOL [Concomitant]
     Active Substance: ACETAMINOPHEN
  6. MIRALAX [Concomitant]
     Active Substance: POLYETHYLENE GLYCOL 3350
     Dosage: UNK UNK, QD

REACTIONS (16)
  - Stress fracture [Recovered/Resolved]
  - Compression fracture [Unknown]
  - Tinnitus [Recovered/Resolved]
  - Pyrexia [Recovered/Resolved]
  - Influenza like illness [Recovered/Resolved]
  - Rash [Recovered/Resolved]
  - Asthenia [Recovered/Resolved]
  - Herpes zoster [Recovered/Resolved]
  - Post herpetic neuralgia [Recovered/Resolved]
  - Arthropathy [Unknown]
  - Hypersensitivity [Unknown]
  - Bone disorder [Unknown]
  - Constipation [Unknown]
  - Irritable bowel syndrome [Unknown]
  - Tooth fracture [Unknown]
  - Tooth disorder [Unknown]

NARRATIVE: CASE EVENT DATE: 20210708
